FAERS Safety Report 6964638-X (Version None)
Quarter: 2010Q3

REPORT INFORMATION
  Report Type: 
  Country: None (occurrence: None)
  Receive Date: 20100903
  Receipt Date: 20100831
  Transmission Date: 20110219
  Serious: Yes (Life-Threatening)
  Sender: FDA-Public Use
  Company Number: ES-WYE-G06609010

PATIENT
  Age: 4 Year
  Sex: Male

DRUGS (4)
  1. TAZOCEL [Suspect]
     Indication: INFECTION PROPHYLAXIS
     Dosage: UNKNOWN
     Route: 042
     Dates: start: 20100523, end: 20100531
  2. NICARDIPINE HYDROCHLORIDE [Concomitant]
     Indication: HYPERTENSION
     Route: 048
     Dates: start: 20100518
  3. IRBESARTAN [Concomitant]
     Indication: HYPERTENSION
     Route: 048
     Dates: start: 20100504, end: 20100514
  4. ENALAPRIL [Concomitant]
     Indication: HYPERTENSION
     Route: 048
     Dates: start: 20100506

REACTIONS (2)
  - COAGULOPATHY [None]
  - POST PROCEDURAL HAEMORRHAGE [None]
